FAERS Safety Report 21578753 (Version 1)
Quarter: 2022Q4

REPORT INFORMATION
  Report Type: Report from Study
  Country: DE (occurrence: DE)
  Receive Date: 20221110
  Receipt Date: 20221110
  Transmission Date: 20230113
  Serious: Yes (Hospitalization, Other)
  Sender: FDA-Public Use
  Company Number: DE-EMA-DD-20221021-5861859-064951

PATIENT
  Sex: Male

DRUGS (8)
  1. METHOTREXATE [Suspect]
     Active Substance: METHOTREXATE
     Indication: Rheumatoid arthritis
     Dosage: UNK, THERAPY START DATE : ASKU , THERAPY END DATE : ASKU
     Route: 065
  2. LEFLUNOMIDE [Suspect]
     Active Substance: LEFLUNOMIDE
     Indication: Product used for unknown indication
     Dosage: LEF 20, THERAPY START DATE : ASKU , THERAPY END DATE : ASKU
     Route: 065
  3. UPADACITINIB [Suspect]
     Active Substance: UPADACITINIB
     Indication: Product used for unknown indication
     Dosage: 15 MG, UNIT DOSE : 15 MG, THERAPY END DATE : NASK
     Route: 065
     Dates: start: 20201216
  4. ERELZI [Suspect]
     Active Substance: ETANERCEPT-SZZS
     Indication: Product used for unknown indication
     Dosage: 50 MG (EVERY TEN DAYS), UNIT DOSE :  50 MG, THERAPY START DATE : ASKU
     Route: 065
  5. ERELZI [Suspect]
     Active Substance: ETANERCEPT-SZZS
     Dosage: 50 MG, UNIT DOSE :  50 MG, DURATION : 1 YEAR
     Route: 065
     Dates: start: 201903, end: 202010
  6. ERELZI [Suspect]
     Active Substance: ETANERCEPT-SZZS
     Dosage: 50 MG, UNIT DOSE : 50 MG,
     Route: 065
  7. CHOLECALCIFEROL [Concomitant]
     Active Substance: CHOLECALCIFEROL
     Indication: Product used for unknown indication
     Dosage: 2000 IU (EVERY OTHER WEEK), UNIT DOSE : 2000IU
     Route: 065
  8. EUTHYROX [Concomitant]
     Active Substance: LEVOTHYROXINE SODIUM
     Indication: Product used for unknown indication
     Dosage: 150 MICROGRAM DAILY; 150 UG, QD
     Route: 065

REACTIONS (3)
  - Pneumonia [Recovered/Resolved]
  - Lupus-like syndrome [Not Recovered/Not Resolved]
  - Leukopenia [Not Recovered/Not Resolved]

NARRATIVE: CASE EVENT DATE: 20190101
